FAERS Safety Report 6594532-8 (Version None)
Quarter: 2010Q1

REPORT INFORMATION
  Report Type: 
  Country: None (occurrence: None)
  Receive Date: 20100222
  Receipt Date: 20100208
  Transmission Date: 20100710
  Serious: Yes (Hospitalization)
  Sender: FDA-Public Use
  Company Number: PHHY2010US06441

PATIENT
  Sex: Male

DRUGS (7)
  1. EXJADE [Suspect]
     Indication: IRON METABOLISM DISORDER
     Dosage: 1500 MG DAILY
     Route: 048
     Dates: start: 20090225
  2. EXJADE [Suspect]
     Indication: HAEMOCHROMATOSIS
     Dosage: 500 MG DAILY
     Dates: start: 20090826
  3. FOSAMAX [Concomitant]
  4. DEPAKOTE [Concomitant]
     Indication: SCHIZOPHRENIA
     Dosage: 500 MG, UNK
  5. DEPAKOTE [Concomitant]
     Dosage: 600 MG, UNK
  6. LAMISIL [Concomitant]
     Indication: SCHIZOPHRENIA
     Dosage: 150 MG, BID
  7. LANSOPRAZOLE [Concomitant]
     Indication: GASTROOESOPHAGEAL REFLUX DISEASE
     Dosage: 70 MG, BID

REACTIONS (3)
  - CONVULSION [None]
  - HYPOTHERMIA [None]
  - PNEUMONIA ASPIRATION [None]
